FAERS Safety Report 9698552 (Version 1)
Quarter: 2013Q4

REPORT INFORMATION
  Report Type: Spontaneous
  Country: CN (occurrence: CN)
  Receive Date: 20131120
  Receipt Date: 20131120
  Transmission Date: 20140711
  Serious: Yes (Other)
  Sender: FDA-Public Use
  Company Number: CN-PFIZER INC-2013328879

PATIENT
  Age: 5 Year
  Sex: Male

DRUGS (3)
  1. SOLU-MEDROL [Suspect]
     Indication: DERMATOMYOSITIS
     Dosage: 2 MG/KG, 1X/DAY
     Route: 041
     Dates: start: 2011
  2. MEDROL [Suspect]
     Indication: DERMATOMYOSITIS
     Dosage: UNK
     Route: 048
  3. MEDROL [Suspect]
     Dosage: 0.5 DF, ALTERNATE DAY
     Route: 048
     Dates: start: 2012

REACTIONS (1)
  - Cataract congenital [Not Recovered/Not Resolved]
